FAERS Safety Report 26118002 (Version 1)
Quarter: 2025Q4

REPORT INFORMATION
  Report Type: Spontaneous
  Country: JP (occurrence: JP)
  Receive Date: 20251203
  Receipt Date: 20251203
  Transmission Date: 20260117
  Serious: Yes (Other)
  Sender: PFIZER
  Company Number: JP-PFIZER INC-202500234654

PATIENT
  Age: 8 Decade
  Sex: Male

DRUGS (1)
  1. CLINDAMYCIN HYDROCHLORIDE [Suspect]
     Active Substance: CLINDAMYCIN HYDROCHLORIDE
     Dosage: UNK
     Route: 048
     Dates: start: 202511, end: 202511

REACTIONS (2)
  - Tinnitus [Unknown]
  - Hypoacusis [Unknown]
